FAERS Safety Report 5283049-9 (Version None)
Quarter: 2007Q1

REPORT INFORMATION
  Report Type: 
  Country: None (occurrence: None)
  Receive Date: 20070328
  Receipt Date: 20070328
  Transmission Date: 20070707
  Serious: Yes (Hospitalization)
  Sender: FDA-Public Use
  Company Number: None

PATIENT
  Age: 59 Year
  Sex: Female
  Weight: 61 kg

DRUGS (1)
  1. ZOLOFT [Suspect]
     Indication: DEPRESSION

REACTIONS (8)
  - BLINDNESS [None]
  - EYE PAIN [None]
  - HEADACHE [None]
  - HEMIANOPIA [None]
  - INTRACRANIAL PRESSURE INCREASED [None]
  - OPTIC ATROPHY [None]
  - PAPILLOEDEMA [None]
  - VISUAL FIELD DEFECT [None]
